FAERS Safety Report 4751502-X (Version None)
Quarter: 2005Q3

REPORT INFORMATION
  Report Type: 
  Country: None (occurrence: None)
  Receive Date: 20050823
  Receipt Date: 20050823
  Transmission Date: 20060218
  Serious: No
  Sender: FDA-Public Use
  Company Number: None

PATIENT
  Age: 56 Year
  Sex: Male
  Weight: 41.7309 kg

DRUGS (2)
  1. SIMVASTATIN [Suspect]
     Indication: BLOOD CHOLESTEROL INCREASED
     Dosage: HS
     Dates: start: 20000801
  2. FLUCONAZOLE [Suspect]
     Indication: BLADDER CANDIDIASIS
     Dosage: EVERY DAY
     Dates: start: 20050324

REACTIONS (3)
  - CANDIDIASIS [None]
  - HYPERAESTHESIA [None]
  - MYALGIA [None]
